FAERS Safety Report 4976228-9 (Version None)
Quarter: 2006Q2

REPORT INFORMATION
  Report Type: 
  Country: None (occurrence: None)
  Receive Date: 20060419
  Receipt Date: 20060412
  Transmission Date: 20061013
  Serious: Yes (Death)
  Sender: FDA-Public Use
  Company Number: US-JNJFOC-20040600971

PATIENT
  Sex: Female
  Weight: 158.76 kg

DRUGS (40)
  1. RISPERDAL [Suspect]
     Route: 065
  2. RISPERDAL [Suspect]
     Route: 065
  3. RISPERDAL [Suspect]
     Dosage: 2 MG THREE TIMES DAILY AND 4 MG AT BEDTIME
     Route: 065
  4. RISPERDAL [Suspect]
     Route: 065
  5. RISPERDAL [Suspect]
     Route: 065
  6. RISPERDAL [Suspect]
     Dosage: 3 MG AT BEDTIME
     Route: 065
  7. RISPERDAL [Suspect]
     Dosage: 3 MG AT BEDTIME
     Route: 065
  8. RISPERDAL [Suspect]
     Route: 065
  9. RISPERDAL [Suspect]
     Dosage: 1 MG IN AM, 2 MG AT BEDTIME
     Route: 065
  10. RISPERDAL [Suspect]
     Route: 065
  11. RISPERDAL [Suspect]
     Route: 065
  12. RISPERDAL [Suspect]
     Route: 065
  13. RISPERDAL [Suspect]
     Indication: SCHIZOPHRENIA
     Dosage: AT BEDTIME
     Route: 065
  14. TOPIRAMATE [Concomitant]
  15. TOPIRAMATE [Concomitant]
  16. AUGMENTIN '125' [Concomitant]
  17. AUGMENTIN '125' [Concomitant]
  18. ACTIFED [Concomitant]
  19. ACTIFED [Concomitant]
     Dosage: PATIENT HAD ONE DOSE ON 21-MAY-02
  20. IMPROMEN [Concomitant]
  21. IMPROMEN [Concomitant]
  22. IMPROMEN [Concomitant]
     Dosage: AT BEDTIME
  23. IMPROMEN [Concomitant]
     Dosage: AT BEDTIME
  24. COGENTIN [Concomitant]
  25. COGENTIN [Concomitant]
  26. COGENTIN [Concomitant]
  27. ATIVAN [Concomitant]
  28. ATIVAN [Concomitant]
  29. ZYPREXA [Concomitant]
     Dosage: 1 TO 2 DOSES DAILY, AS NEEDED
  30. ZYPREXA [Concomitant]
     Dosage: 1 TO 2 DOSES DAILY, AS NEEDED
  31. DEPAKOTE [Concomitant]
  32. ZOLOFT [Concomitant]
  33. TOFRANIL [Concomitant]
  34. TOFRANIL [Concomitant]
     Dosage: AT BEDTIME
  35. ARTANE [Concomitant]
  36. LUVOX [Concomitant]
     Dosage: IN AM
  37. LUVOX [Concomitant]
     Dosage: AT BEDTIME
  38. DITROPAN [Concomitant]
  39. DETROL [Concomitant]
  40. DETROL [Concomitant]

REACTIONS (15)
  - ABNORMAL BEHAVIOUR [None]
  - AGGRESSION [None]
  - AMENORRHOEA [None]
  - CARDIOMYOPATHY [None]
  - DELUSION [None]
  - DYSKINESIA [None]
  - FALL [None]
  - GENITOURINARY TRACT INFECTION [None]
  - HALLUCINATION, AUDITORY [None]
  - HYPERPHAGIA [None]
  - LOGORRHOEA [None]
  - PULMONARY OEDEMA [None]
  - RESTLESSNESS [None]
  - TARDIVE DYSKINESIA [None]
  - WEIGHT INCREASED [None]
